FAERS Safety Report 5339838-5 (Version None)
Quarter: 2007Q2

REPORT INFORMATION
  Report Type: 
  Country: None (occurrence: None)
  Receive Date: 20070529
  Receipt Date: 20070521
  Transmission Date: 20071010
  Serious: Yes (Other)
  Sender: FDA-Public Use
  Company Number: 2005-11-0515

PATIENT
  Age: 41 Year

DRUGS (5)
  1. VIRAFERONPEG [Suspect]
     Indication: HEPATITIS C
     Dosage: 150 MCG; QW; SC
     Route: 058
     Dates: start: 20030404, end: 20050524
  2. VIRAFERONPEG [Suspect]
     Indication: HEPATITIS C
     Dosage: 150 MCG; QW; SC
     Route: 058
     Dates: start: 20050531
  3. REBETOL [Suspect]
     Indication: HEPATITIS C
     Dosage: 1200 MG; QD; PO
     Route: 048
     Dates: start: 20030404, end: 20050530
  4. MANTADIX (CON.) [Concomitant]
  5. ZESTORETIC (CON.) [Concomitant]

REACTIONS (4)
  - ABORTION SPONTANEOUS [None]
  - PREGNANCY OF PARTNER [None]
  - PREGNANCY WITH IMPLANT CONTRACEPTIVE [None]
  - TRANSMISSION OF DRUG VIA SEMEN [None]
